FAERS Safety Report 18944156 (Version 2)
Quarter: 2021Q1

REPORT INFORMATION
  Report Type: Spontaneous
  Country: JP (occurrence: JP)
  Receive Date: 20210226
  Receipt Date: 20210329
  Transmission Date: 20210420
  Serious: Yes (Other)
  Sender: FDA-Public Use
  Company Number: NVSJ2021JP000776

PATIENT
  Age: 80 Year
  Sex: Male

DRUGS (2)
  1. BEOVU [Suspect]
     Active Substance: BROLUCIZUMAB-DBLL
     Indication: NEOVASCULAR AGE-RELATED MACULAR DEGENERATION
     Dosage: 6 MG
     Route: 031
     Dates: start: 20200915, end: 20200915
  2. BEOVU [Suspect]
     Active Substance: BROLUCIZUMAB-DBLL
     Indication: POLYPOIDAL CHOROIDAL VASCULOPATHY
     Dosage: 6 MG
     Route: 031
     Dates: start: 20201215, end: 20201215

REACTIONS (8)
  - Keratic precipitates [Recovered/Resolved]
  - Retinal perivascular sheathing [Recovering/Resolving]
  - Anterior chamber flare [Recovered/Resolved]
  - Blindness transient [Recovered/Resolved]
  - Vision blurred [Recovered/Resolved]
  - Vitreous opacities [Recovered/Resolved]
  - Anterior chamber cell [Recovered/Resolved]
  - Iritis [Recovering/Resolving]

NARRATIVE: CASE EVENT DATE: 20201221
